FAERS Safety Report 10399859 (Version 3)
Quarter: 2014Q3

REPORT INFORMATION
  Report Type: Spontaneous
  Country: US (occurrence: US)
  Receive Date: 20140821
  Receipt Date: 20140909
  Transmission Date: 20150326
  Serious: Yes (Other)
  Sender: FDA-Public Use
  Company Number: US-TEVA-503795USA

PATIENT
  Sex: Male

DRUGS (1)
  1. COPAXONE [Suspect]
     Active Substance: GLATIRAMER ACETATE
     Indication: MULTIPLE SCLEROSIS
     Dosage: 17.1429 MILLIGRAM DAILY;
     Dates: start: 2014

REACTIONS (6)
  - Gait disturbance [Not Recovered/Not Resolved]
  - Drug effect decreased [Not Recovered/Not Resolved]
  - Multiple sclerosis [Unknown]
  - Fall [Not Recovered/Not Resolved]
  - Hypokinesia [Not Recovered/Not Resolved]
  - Muscular weakness [Not Recovered/Not Resolved]
